FAERS Safety Report 20659951 (Version 1)
Quarter: 2022Q1

REPORT INFORMATION
  Report Type: Spontaneous
  Country: DE (occurrence: DE)
  Receive Date: 20220331
  Receipt Date: 20220331
  Transmission Date: 20220423
  Serious: Yes (Other)
  Sender: FDA-Public Use
  Company Number: DE-TEVA-2022-DE-2020988

PATIENT
  Age: 45 Year

DRUGS (1)
  1. COPAXONE [Suspect]
     Active Substance: GLATIRAMER ACETATE
     Indication: Multiple sclerosis
     Route: 065
     Dates: start: 2021

REACTIONS (6)
  - Suicidal ideation [Unknown]
  - Mental disorder [Unknown]
  - Fear [Unknown]
  - Depression [Unknown]
  - Nervousness [Unknown]
  - Anxiety [Unknown]
